FAERS Safety Report 25936752 (Version 1)
Quarter: 2025Q4

REPORT INFORMATION
  Report Type: Spontaneous
  Country: US (occurrence: US)
  Receive Date: 20251017
  Receipt Date: 20251017
  Transmission Date: 20260118
  Serious: Yes (Death, Hospitalization, Other)
  Sender: NOVO NORDISK
  Company Number: US-NOVOPROD-1534765

PATIENT
  Age: 72 Year
  Sex: Male

DRUGS (2)
  1. LEVEMIR [Suspect]
     Active Substance: INSULIN DETEMIR
     Indication: Product used for unknown indication
     Dosage: UNK
  2. INSULIN NOS [Suspect]
     Active Substance: INSULIN NOS
     Indication: Product used for unknown indication
     Dosage: UNK (TAKING MORNING, NOON AND EVENING)

REACTIONS (6)
  - Cerebrovascular accident [Fatal]
  - Fall [Unknown]
  - Hepatic cancer [Unknown]
  - Pancreatic carcinoma [Unknown]
  - Hypophagia [Unknown]
  - Dizziness [Unknown]

NARRATIVE: CASE EVENT DATE: 20190101
